FAERS Safety Report 6379113-3 (Version None)
Quarter: 2009Q3

REPORT INFORMATION
  Report Type: 
  Country: None (occurrence: None)
  Receive Date: 20090923
  Receipt Date: 20090923
  Transmission Date: 20100115
  Serious: Yes (Life-Threatening, Hospitalization)
  Sender: FDA-Public Use
  Company Number: None

PATIENT
  Age: 50 Year
  Sex: Male
  Weight: 66.2 kg

DRUGS (10)
  1. OMNIPAQUE 300 [Suspect]
     Indication: SCAN WITH CONTRAST
     Dosage: 100 ML
     Dates: start: 20090524
  2. VANCOMYCIN [Suspect]
     Dosage: 1.5- 1 G Q12-24 HRS
     Dates: start: 20090523
  3. HEPARIN [Concomitant]
  4. AMRIX [Concomitant]
  5. HYDROMORPHONE [Concomitant]
  6. METOPROLOL [Concomitant]
  7. DIPHENHYDRAMINE HCL [Concomitant]
  8. ONDANSETRON [Concomitant]
  9. RANITIDINE [Concomitant]
  10. MUPIROCIN [Concomitant]

REACTIONS (2)
  - BLOOD CREATININE INCREASED [None]
  - CREATININE RENAL CLEARANCE DECREASED [None]
